FAERS Safety Report 15855214 (Version 2)
Quarter: 2019Q1

REPORT INFORMATION
  Report Type: Spontaneous
  Country: US (occurrence: US)
  Receive Date: 20190122
  Receipt Date: 20190219
  Transmission Date: 20190417
  Serious: Yes (Death, Life-Threatening, Hospitalization)
  Sender: FDA-Public Use
  Company Number: US-AMNEAL PHARMACEUTICALS-2019AMN00076

PATIENT
  Age: 76 Year
  Sex: Male
  Weight: 76.01 kg

DRUGS (10)
  1. ENCORTON [Concomitant]
     Active Substance: PREDNISONE
     Indication: CANCER PAIN
     Dosage: UNK
     Dates: start: 2017, end: 20181220
  2. WARFARIN SODIUM. [Suspect]
     Active Substance: WARFARIN SODIUM
     Indication: ATRIAL FIBRILLATION
     Dosage: 3-3-6 MG DAY BY DAY, MOST RECENT DOSE 3-6
     Route: 048
     Dates: start: 2017, end: 20181220
  3. TRANSTEC [Concomitant]
     Active Substance: BUPRENORPHINE
     Indication: PRODUCT USED FOR UNKNOWN INDICATION
     Dosage: UNK
     Dates: start: 20181130
  4. TRAMAL [Concomitant]
     Active Substance: TRAMADOL
     Indication: CANCER PAIN
     Dosage: UNK
     Dates: start: 20181130, end: 20181220
  5. ASPARGIN [Concomitant]
     Active Substance: ASPARTIC ACID
     Indication: PROPHYLAXIS
     Dosage: UNK
     Dates: start: 2017, end: 20181220
  6. LYRICA [Concomitant]
     Active Substance: PREGABALIN
     Indication: CANCER PAIN
     Dosage: UNK
     Dates: start: 2017, end: 20181220
  7. ZERLINDA [Concomitant]
     Active Substance: ZOLEDRONIC ACID
     Indication: PROSTATE CANCER METASTATIC
     Dosage: UNK
     Dates: start: 2017, end: 20181220
  8. ASCOFER [Concomitant]
     Active Substance: FERROUS GLUCONATE
     Indication: ANAEMIA
     Dosage: UNK
     Dates: start: 2018, end: 20181220
  9. DOXAR [Concomitant]
     Indication: PROSTATE CANCER
     Dosage: UNK
     Dates: start: 2017, end: 20181220
  10. BIBLOC [Concomitant]
     Active Substance: BISOPROLOL
     Indication: CORONARY ARTERY DISEASE
     Dosage: UNK
     Dates: start: 2017, end: 20181220

REACTIONS (7)
  - Haemorrhagic stroke [Unknown]
  - Anaemia [Unknown]
  - Coagulopathy [Unknown]
  - Gingival bleeding [Unknown]
  - Prostate cancer [Fatal]
  - Rectal haemorrhage [Unknown]
  - Hypocalcaemia [Unknown]
